FAERS Safety Report 9183869 (Version 1)
Quarter: 2013Q1

REPORT INFORMATION
  Report Type: Spontaneous
  Country: US (occurrence: US)
  Receive Date: 20130322
  Receipt Date: 20130322
  Transmission Date: 20140127
  Serious: No
  Sender: FDA-Public Use
  Company Number: US-BRISTOL-MYERS SQUIBB COMPANY-16646671

PATIENT
  Age: 76 Year
  Sex: Male

DRUGS (2)
  1. ERBITUX [Suspect]
     Dosage: 2 TREATMENTS OF ERBITUX
  2. XELODA [Concomitant]

REACTIONS (3)
  - Rash [Not Recovered/Not Resolved]
  - Fatigue [Unknown]
  - Headache [Unknown]
